FAERS Safety Report 8887909 (Version 1)
Quarter: 2012Q4

REPORT INFORMATION
  Report Type: 
  Country: US (occurrence: US)
  Receive Date: 20121106
  Receipt Date: 20121106
  Transmission Date: 20130627
  Serious: Yes (Hospitalization, Other)
  Sender: FDA-Public Use
  Company Number: US-CELGENEUS-163-21880-12040898

PATIENT
  Sex: Male
  Weight: 62.6 kg

DRUGS (3)
  1. REVLIMID [Suspect]
     Indication: MULTIPLE MYELOMA
     Dosage: 25 Milligram
     Route: 048
     Dates: start: 20060913, end: 20100118
  2. REVLIMID [Suspect]
     Dosage: 25 Milligram
     Route: 048
     Dates: start: 20120307
  3. REVLIMID [Suspect]
     Dosage: 25 Milligram
     Route: 048
     Dates: start: 2012

REACTIONS (5)
  - Spinal fracture [Unknown]
  - Fall [Unknown]
  - Urinary tract infection [Unknown]
  - Feeling abnormal [Unknown]
  - Gait disturbance [Unknown]
